FAERS Safety Report 4983213-X (Version None)
Quarter: 2006Q2

REPORT INFORMATION
  Report Type: 
  Country: None (occurrence: None)
  Receive Date: 20060419
  Receipt Date: 20060405
  Transmission Date: 20061013
  Serious: Yes (Death, Hospitalization)
  Sender: FDA-Public Use
  Company Number: 2006-BP-03978RO

PATIENT
  Age: 85 Year
  Sex: Female

DRUGS (3)
  1. METHOTREXATE [Suspect]
     Indication: RHEUMATOID ARTHRITIS
     Dosage: 20 MG/DAY
  2. XIPAMIDE [Concomitant]
  3. NITRATES [Concomitant]

REACTIONS (17)
  - ACCIDENTAL OVERDOSE [None]
  - DRUG TOXICITY [None]
  - ERYTHEMA [None]
  - HEPATIC HAEMORRHAGE [None]
  - HEPATITIS [None]
  - MARROW HYPERPLASIA [None]
  - MITRAL VALVE SCLEROSIS [None]
  - MUCOSAL INFLAMMATION [None]
  - MYOCARDIAL FIBROSIS [None]
  - NEPHRITIS [None]
  - PANCYTOPENIA [None]
  - PETECHIAE [None]
  - PULMONARY OEDEMA [None]
  - RENAL DISORDER [None]
  - RESPIRATORY FAILURE [None]
  - SEPTIC SHOCK [None]
  - STRIDOR [None]
